FAERS Safety Report 8831380 (Version 2)
Quarter: 2012Q4

REPORT INFORMATION
  Report Type: 
  Country: US (occurrence: US)
  Receive Date: 20121009
  Receipt Date: 20121115
  Transmission Date: 20130627
  Serious: Yes (Hospitalization)
  Sender: FDA-Public Use
  Company Number: US-BAYER-2012-103785

PATIENT
  Age: 45 Year
  Sex: Female
  Weight: 140.14 kg

DRUGS (5)
  1. YAZ [Suspect]
     Dosage: UNK
     Dates: start: 20081101
  2. YAZ [Suspect]
     Dosage: UNK
     Dates: start: 20081120
  3. YAZ [Suspect]
     Dosage: UNK
     Dates: start: 20081212
  4. YAZ [Suspect]
     Dosage: UNK
     Dates: start: 20090612
  5. CYMBALTA [Concomitant]
     Indication: DEPRESSION
     Dosage: UNK
     Dates: start: 2003

REACTIONS (8)
  - Gallbladder disorder [None]
  - Injury [None]
  - Pain [None]
  - General physical health deterioration [None]
  - Emotional distress [None]
  - Pain [None]
  - Anxiety [None]
  - Anhedonia [None]
